FAERS Safety Report 10605868 (Version 2)
Quarter: 2014Q4

REPORT INFORMATION
  Report Type: Spontaneous
  Country: US (occurrence: None)
  Receive Date: 20141121
  Receipt Date: 20141128
  Transmission Date: 20150529
  Serious: Yes (Hospitalization)
  Sender: FDA-Public Use
  Company Number: 2014-US-014992

PATIENT
  Sex: Female

DRUGS (1)
  1. XYREM [Suspect]
     Active Substance: SODIUM OXYBATE
     Indication: FIBROMYALGIA
     Route: 048
     Dates: start: 201407

REACTIONS (7)
  - Seizure [None]
  - Psychotic disorder [None]
  - Drug administration error [None]
  - Self-medication [None]
  - Depressed level of consciousness [None]
  - Off label use [None]
  - Delusion [None]

NARRATIVE: CASE EVENT DATE: 201407
